FAERS Safety Report 7850255-6 (Version None)
Quarter: 2011Q4

REPORT INFORMATION
  Report Type: 
  Country: None (occurrence: None)
  Receive Date: 20111026
  Receipt Date: 20111014
  Transmission Date: 20120403
  Serious: Yes (Other)
  Sender: FDA-Public Use
  Company Number: US-BAYER-2011-102004

PATIENT
  Sex: Female

DRUGS (2)
  1. YAZ [Suspect]
     Dosage: UNK
     Dates: start: 20070101, end: 20100101
  2. YASMIN [Suspect]
     Dosage: UNK
     Dates: start: 20070101, end: 20100101

REACTIONS (2)
  - NEPHROLITHIASIS [None]
  - CHOLECYSTECTOMY [None]
